FAERS Safety Report 4536624-0 (Version None)
Quarter: 2004Q4

REPORT INFORMATION
  Report Type: 
  Country: None (occurrence: None)
  Receive Date: 20041223
  Receipt Date: 20041119
  Transmission Date: 20050328
  Serious: Yes (Other)
  Sender: FDA-Public Use
  Company Number: 200418968US

PATIENT
  Sex: Female
  Weight: 72.7 kg

DRUGS (5)
  1. KETEK [Suspect]
     Indication: SINUSITIS
     Dosage: DOSE: 400MG / 2 TABLETS
     Route: 048
  2. HYZAAR [Concomitant]
     Indication: HYPERTENSION
     Dates: start: 20020101
  3. ASPIRIN [Concomitant]
     Dosage: DOSE: UNKNOWN
  4. CALCIUM [Concomitant]
     Dosage: DOSE: UNKNOWN
  5. MIRCETTE [Concomitant]
     Indication: CONTRACEPTION
     Dosage: DOSE: UNK
     Dates: start: 20030101

REACTIONS (2)
  - BLOOD PRESSURE INCREASED [None]
  - HEADACHE [None]
